FAERS Safety Report 9926393 (Version 1)
Quarter: 2014Q1

REPORT INFORMATION
  Report Type: Spontaneous
  Country: US (occurrence: US)
  Receive Date: 20140226
  Receipt Date: 20140226
  Transmission Date: 20141002
  Serious: No
  Sender: FDA-Public Use
  Company Number: US-AMGEN-USASP2013068416

PATIENT
  Age: 47 Year
  Sex: Female

DRUGS (5)
  1. ENBREL [Suspect]
     Indication: PRODUCT USED FOR UNKNOWN INDICATION
     Dosage: 50 MG, EVERY WEEK
     Route: 058
  2. METHOCARBAMOL [Concomitant]
     Dosage: 500 MG, UNK
  3. SINGULAIR [Concomitant]
     Dosage: 10 MG, UNK
  4. FLEXALL PAIN RELIEVING [Concomitant]
     Dosage: UNK
  5. IBUPROFEN [Concomitant]
     Dosage: 200 MG, UNK

REACTIONS (3)
  - Headache [Unknown]
  - Constipation [Unknown]
  - Abdominal distension [Unknown]
